FAERS Safety Report 8016246-X (Version None)
Quarter: 2011Q4

REPORT INFORMATION
  Report Type: 
  Country: None (occurrence: None)
  Receive Date: 20111230
  Receipt Date: 20111222
  Transmission Date: 20120403
  Serious: Yes (Hospitalization, Disabling)
  Sender: FDA-Public Use
  Company Number: US-MERCK-1108USA03572

PATIENT
  Age: 81 Year
  Sex: Female
  Weight: 48 kg

DRUGS (6)
  1. FOSAMAX [Suspect]
     Indication: OSTEOPOROSIS
     Route: 048
     Dates: start: 20020101, end: 20080101
  2. FOSAMAX [Suspect]
     Route: 048
     Dates: start: 19990212
  3. CALCIUM (UNSPECIFIED) AND VITAMIN D (UNSPECIFIED) [Concomitant]
     Route: 048
     Dates: start: 19990101
  4. VYTORIN [Concomitant]
     Route: 065
     Dates: start: 19900101
  5. FOSAMAX [Suspect]
     Route: 065
     Dates: start: 19950101, end: 20090101
  6. CARDIZEM [Concomitant]
     Route: 065
     Dates: start: 19900101

REACTIONS (29)
  - BALANCE DISORDER [None]
  - ESSENTIAL TREMOR [None]
  - BACK PAIN [None]
  - HYPERLIPIDAEMIA [None]
  - HYPERTENSION [None]
  - FEMUR FRACTURE [None]
  - ATRIAL FIBRILLATION [None]
  - GASTROOESOPHAGEAL REFLUX DISEASE [None]
  - IRON DEFICIENCY [None]
  - TREMOR [None]
  - ARTHRALGIA [None]
  - VITAMIN B12 DEFICIENCY [None]
  - RIB FRACTURE [None]
  - CAROTID ARTERY STENOSIS [None]
  - ADVERSE DRUG REACTION [None]
  - SCOLIOSIS [None]
  - OSTEOPENIA [None]
  - NORMOCHROMIC NORMOCYTIC ANAEMIA [None]
  - CONSTIPATION [None]
  - HEPATIC CYST [None]
  - NAUSEA [None]
  - WEIGHT DECREASED [None]
  - SPINAL FRACTURE [None]
  - TOOTH DISORDER [None]
  - CATARACT [None]
  - DENTAL CARIES [None]
  - DIVERTICULUM [None]
  - THORACIC VERTEBRAL FRACTURE [None]
  - BLOOD CHOLESTEROL INCREASED [None]
